FAERS Safety Report 22240733 (Version 4)
Quarter: 2023Q2

REPORT INFORMATION
  Report Type: Spontaneous
  Country: JP (occurrence: JP)
  Receive Date: 20230421
  Receipt Date: 20230601
  Transmission Date: 20230721
  Serious: Yes (Death)
  Sender: FDA-Public Use
  Company Number: JP-BIOCRYST PHARMACEUTICALS, INC.-2023BCR00355

PATIENT

DRUGS (3)
  1. RAPIACTA [Suspect]
     Active Substance: PERAMIVIR
     Indication: Influenza
     Dosage: 300 MG, ONCE
     Route: 042
     Dates: start: 20230328, end: 20230328
  2. AMINO ACIDS\DEXTROSE\ELECTROLYTES NOS\VITAMINS [Concomitant]
     Active Substance: AMINO ACIDS\DEXTROSE\ELECTROLYTES NOS\VITAMINS
     Dosage: 1000 ML, ONCE (ORAL INTAKE REDUCED)
     Route: 042
     Dates: start: 20230328, end: 20230328
  3. AMINO ACIDS\DEXTROSE\ELECTROLYTES NOS\VITAMINS [Concomitant]
     Active Substance: AMINO ACIDS\DEXTROSE\ELECTROLYTES NOS\VITAMINS
     Dosage: 500 ML, ONCE (ORAL INTAKE REDUCED)
     Route: 042
     Dates: start: 20230328, end: 20230328

REACTIONS (1)
  - Pancreatitis acute [Fatal]

NARRATIVE: CASE EVENT DATE: 20230329
